FAERS Safety Report 13760590 (Version 9)
Quarter: 2018Q3

REPORT INFORMATION
  Report Type: Spontaneous
  Country: DE (occurrence: DE)
  Receive Date: 20170717
  Receipt Date: 20180814
  Transmission Date: 20181010
  Serious: Yes (Hospitalization)
  Sender: FDA-Public Use
  Company Number: DE-TEVA-785054GER

PATIENT
  Age: 76 Year
  Sex: Male
  Weight: 97.4 kg

DRUGS (23)
  1. FALITHROM [Concomitant]
     Active Substance: PHENPROCOUMON
     Indication: ATRIAL FIBRILLATION
     Route: 065
  2. JANUVIA 50 MG [Concomitant]
     Dosage: 50 MILLIGRAM DAILY;
  3. VALSARTAN. [Concomitant]
     Active Substance: VALSARTAN
     Indication: DIABETIC NEPHROPATHY
  4. SARTAN [Concomitant]
     Active Substance: LOSARTAN POTASSIUM
     Route: 065
  5. METFORMIN [Concomitant]
     Active Substance: METFORMIN HYDROCHLORIDE
     Route: 065
  6. TOREM [Concomitant]
     Active Substance: TORSEMIDE
     Dosage: 10 MILLIGRAM DAILY; DAILY DOSE: 10 MG MILLIGRAM(S) EVERY DAY
     Route: 065
  7. FLUVASTATIN 40 [Concomitant]
     Dosage: 40 MILLIGRAM DAILY;
     Route: 065
  8. BICALUTAMIDE. [Suspect]
     Active Substance: BICALUTAMIDE
     Indication: PROSTATE CANCER
     Route: 048
     Dates: start: 20170430, end: 20170508
  9. HCT [Concomitant]
     Active Substance: HYDROCHLOROTHIAZIDE
  10. PANTOZOL 40 MG [Concomitant]
     Dosage: 40 MILLIGRAM DAILY;
     Route: 065
  11. BELOC ZOK MITE [Concomitant]
     Active Substance: METOPROLOL SUCCINATE
     Route: 065
  12. VALSARTAN. [Concomitant]
     Active Substance: VALSARTAN
     Indication: PROTEINURIA
  13. FOLSAN 5MG [Concomitant]
     Dosage: 5 MILLIGRAM DAILY;
  14. VALSARTAN. [Concomitant]
     Active Substance: VALSARTAN
     Indication: HYPERTENSION
     Dosage: 80 MILLIGRAM DAILY; 1?0?0, DAILY DOSE: 80 MG MILLIGRAM(S) EVERY DAY
     Dates: end: 20170512
  15. FERROSONAL [Concomitant]
     Dosage: 100 MILLIGRAM DAILY;
     Route: 065
  16. HYDROMORPHONE [Concomitant]
     Active Substance: HYDROMORPHONE
     Route: 065
  17. ISOPHANE INSULIN [Concomitant]
     Active Substance: INSULIN NOS
     Dosage: 34 IU (INTERNATIONAL UNIT) DAILY;
  18. RAMIPRIL. [Concomitant]
     Active Substance: RAMIPRIL
     Dosage: 10 MILLIGRAM DAILY; DAILY DOSE: 10 MG MILLIGRAM(S) EVERY DAY
     Route: 065
  19. INSULIN LISPRO [Concomitant]
     Active Substance: INSULIN LISPRO
     Route: 065
  20. ALLOPURINOL. [Concomitant]
     Active Substance: ALLOPURINOL
  21. NOVAMINSULFON 30 [Concomitant]
     Route: 065
  22. CALCIVIT D [Concomitant]
     Route: 065
  23. AMLODIPINE 10 MG [Concomitant]
     Active Substance: AMLODIPINE BESYLATE
     Dosage: 10 MILLIGRAM DAILY;
     Route: 065

REACTIONS (2)
  - Nephrotic syndrome [Not Recovered/Not Resolved]
  - Cutaneous vasculitis [Not Recovered/Not Resolved]

NARRATIVE: CASE EVENT DATE: 20170501
